FAERS Safety Report 7153519-7 (Version None)
Quarter: 2010Q4

REPORT INFORMATION
  Report Type: 
  Country: None (occurrence: None)
  Receive Date: 20101213
  Receipt Date: 20101209
  Transmission Date: 20110411
  Serious: Yes (Other)
  Sender: FDA-Public Use
  Company Number: AU-ROCHE-746999

PATIENT
  Sex: Male

DRUGS (1)
  1. VALIUM [Suspect]
     Route: 065

REACTIONS (1)
  - NEUROLEPTIC MALIGNANT SYNDROME [None]
